FAERS Safety Report 9148052 (Version 2)
Quarter: 2013Q1

REPORT INFORMATION
  Report Type: Spontaneous
  Country: US (occurrence: US)
  Receive Date: 20130308
  Receipt Date: 20130319
  Transmission Date: 20140127
  Serious: Yes (Other)
  Sender: FDA-Public Use
  Company Number: US-AMGEN-USASP2013013564

PATIENT
  Age: 53 Year
  Sex: Male
  Weight: 81.63 kg

DRUGS (6)
  1. ENBREL [Suspect]
     Indication: ANKYLOSING SPONDYLITIS
     Dosage: 50 MG, QWK
     Route: 058
     Dates: start: 20080301
  2. VICODIN [Concomitant]
     Indication: ANKYLOSING SPONDYLITIS
     Dosage: 5-500 MG ONE TO TAB Q6HRS, AS NECESSARY
     Route: 048
  3. VICODIN [Concomitant]
     Indication: PAIN
  4. ARTHOTEC [Concomitant]
     Indication: ANKYLOSING SPONDYLITIS
     Dosage: 50-200 MG-MCG TAB 1 PO Q DAY
  5. HUMIRA [Concomitant]
     Dosage: UNK
  6. REMICADE [Concomitant]
     Dosage: UNK

REACTIONS (15)
  - Joint stiffness [Not Recovered/Not Resolved]
  - Sciatica [Unknown]
  - Anxiety [Unknown]
  - Arthralgia [Unknown]
  - Ocular hyperaemia [Unknown]
  - Fatigue [Unknown]
  - Dysuria [Unknown]
  - Photophobia [Unknown]
  - Pain [Unknown]
  - Iridocyclitis [Unknown]
  - Nausea [Not Recovered/Not Resolved]
  - Eye pain [Not Recovered/Not Resolved]
  - Vision blurred [Not Recovered/Not Resolved]
  - Headache [Not Recovered/Not Resolved]
  - Feeling abnormal [Not Recovered/Not Resolved]
